FAERS Safety Report 7968225-6 (Version None)
Quarter: 2011Q4

REPORT INFORMATION
  Report Type: 
  Country: None (occurrence: None)
  Receive Date: 20111209
  Receipt Date: 20111129
  Transmission Date: 20120403
  Serious: Yes (Hospitalization, Other)
  Sender: FDA-Public Use
  Company Number: PHHY2011ES104660

PATIENT
  Age: 5 Year
  Sex: Male

DRUGS (4)
  1. EXJADE [Suspect]
     Indication: HAEMOSIDEROSIS
     Dosage: 625 MG, DAILY
     Route: 048
     Dates: end: 20111026
  2. EXJADE [Suspect]
     Dosage: 20-25 MG/KG DAILY
  3. EXJADE [Suspect]
     Dosage: 625 MG, DAILY
     Route: 048
     Dates: start: 20090901, end: 20111026
  4. EXJADE [Suspect]
     Dosage: 35 MG/KG, DAILY

REACTIONS (20)
  - METABOLIC ACIDOSIS [None]
  - HYPOURICAEMIA [None]
  - CONSTIPATION [None]
  - LOCALISED INFECTION [None]
  - RENAL TUBULAR ACIDOSIS [None]
  - BLOOD CREATININE INCREASED [None]
  - HYPERTRANSAMINASAEMIA [None]
  - URINE URIC ACID ABNORMAL [None]
  - NAUSEA [None]
  - FEMUR FRACTURE [None]
  - VOMITING [None]
  - FANCONI SYNDROME ACQUIRED [None]
  - HYPERCALCIURIA [None]
  - DEHYDRATION [None]
  - ABDOMINAL PAIN [None]
  - ABDOMINAL PAIN UPPER [None]
  - URINE SODIUM ABNORMAL [None]
  - HYPONATRAEMIA [None]
  - GLYCOSURIA [None]
  - PROTEINURIA [None]
